FAERS Safety Report 7527849-0 (Version None)
Quarter: 2011Q2

REPORT INFORMATION
  Report Type: 
  Country: None (occurrence: None)
  Receive Date: 20110607
  Receipt Date: 20110531
  Transmission Date: 20111010
  Serious: Yes (Other)
  Sender: FDA-Public Use
  Company Number: DE-AMGEN-DEUNI2011028069

PATIENT
  Age: 60 Year
  Sex: Male

DRUGS (3)
  1. CAMPATH [Concomitant]
     Dosage: 30 MG, UNK
     Route: 058
  2. DEXAMETHASONE [Concomitant]
     Dosage: 40 MG, UNK
     Route: 048
  3. NEULASTA [Suspect]
     Dosage: 6 MG, UNK

REACTIONS (1)
  - MELAENA [None]
